FAERS Safety Report 7240070-9 (Version None)
Quarter: 2011Q1

REPORT INFORMATION
  Report Type: 
  Country: None (occurrence: None)
  Receive Date: 20110124
  Receipt Date: 20110119
  Transmission Date: 20110831
  Serious: No
  Sender: FDA-Public Use
  Company Number: US-BIOGENIDEC-2011BI002248

PATIENT
  Age: 40 Year
  Sex: Female

DRUGS (1)
  1. AVONEX [Suspect]
     Indication: MULTIPLE SCLEROSIS
     Route: 030
     Dates: start: 20101216

REACTIONS (5)
  - CONTUSION [None]
  - VITAMIN D DECREASED [None]
  - ARTHRALGIA [None]
  - INJECTION SITE MASS [None]
  - RASH ERYTHEMATOUS [None]
